FAERS Safety Report 10078720 (Version 1)
Quarter: 2014Q2

REPORT INFORMATION
  Report Type: Spontaneous
  Country: US (occurrence: None)
  Receive Date: 20140414
  Receipt Date: 20140414
  Transmission Date: 20141212
  Serious: Yes (Other)
  Sender: FDA-Public Use
  Company Number: None

PATIENT
  Age: 51 Year
  Sex: Female

DRUGS (1)
  1. CAPECITABINE [Suspect]
     Dosage: 3 TABS TWICE DAILY 14 DAYS ON 7 DAYS OFF
     Route: 048
     Dates: start: 20140327

REACTIONS (2)
  - Headache [None]
  - Palmar-plantar erythrodysaesthesia syndrome [None]
